FAERS Safety Report 8164254-0 (Version None)
Quarter: 2012Q1

REPORT INFORMATION
  Report Type: 
  Country: None (occurrence: None)
  Receive Date: 20120224
  Receipt Date: 20111110
  Transmission Date: 20120608
  Serious: Yes (Other)
  Sender: FDA-Public Use
  Company Number: US-ASTRAZENECA-2011SE68621

PATIENT
  Sex: Male

DRUGS (1)
  1. VIMOVO [Suspect]
     Dosage: 500 MG / 20 MG, FREQUENCY: UNKNOWN.
     Route: 048

REACTIONS (1)
  - STEVENS-JOHNSON SYNDROME [None]
